FAERS Safety Report 9393920 (Version 1)
Quarter: 2013Q3

REPORT INFORMATION
  Report Type: Spontaneous
  Country: DE (occurrence: None)
  Receive Date: 20130705
  Receipt Date: 20130705
  Transmission Date: 20140515
  Serious: Yes (Other)
  Sender: FDA-Public Use
  Company Number: 7220411

PATIENT
  Age: 60 Year
  Sex: Female

DRUGS (4)
  1. EUTHYROX [Suspect]
     Indication: THYROIDECTOMY
     Route: 048
     Dates: start: 201209
  2. LIVIELLA (TIBOLONE) (TIBOLONE) [Concomitant]
  3. BLOPRESS (CANDESARTAN CILEXETIL) (CANDESARTAN CILEXETIL) [Concomitant]
  4. AMLOBETA (AMLODIPINE MESILATE) (AMLODIPINE MESILATE) [Concomitant]

REACTIONS (2)
  - Blood pressure increased [None]
  - Blood thyroid stimulating hormone decreased [None]
